FAERS Safety Report 25590747 (Version 2)
Quarter: 2025Q3

REPORT INFORMATION
  Report Type: Spontaneous
  Country: US (occurrence: US)
  Receive Date: 20250722
  Receipt Date: 20250807
  Transmission Date: 20251020
  Serious: Yes (Life-Threatening, Hospitalization, Other)
  Sender: TORRENT PHARMA INC.
  Company Number: US-MLMSERVICE-20250709-PI571992-00291-1

PATIENT
  Age: 8 Decade
  Sex: Male

DRUGS (3)
  1. ROSUVASTATIN [Interacting]
     Active Substance: ROSUVASTATIN
     Indication: Product used for unknown indication
     Dosage: POTENTIALLY RECEIVING FIVE TIMES THE MAXIMUM DOSE
     Route: 065
     Dates: start: 2012
  2. DAROLUTAMIDE [Interacting]
     Active Substance: DAROLUTAMIDE
     Indication: Hormone-refractory prostate cancer
     Dosage: WITH A TENTATIVE PLAN TO TITRATE UP TO 300 MG TWICE DAILY OR THE RECOMMENDED RENAL-ADJUSTED DOSE
     Route: 065
  3. EZETIMIBE [Interacting]
     Active Substance: EZETIMIBE
     Indication: Product used for unknown indication
     Route: 065

REACTIONS (4)
  - Rhabdomyolysis [Recovering/Resolving]
  - Drug interaction [Recovering/Resolving]
  - Overdose [Recovering/Resolving]
  - Incorrect dose administered [Recovering/Resolving]
